FAERS Safety Report 8776743 (Version 2)
Quarter: 2013Q3

REPORT INFORMATION
  Report Type: Spontaneous
  Country: US (occurrence: US)
  Receive Date: 20120910
  Receipt Date: 20130730
  Transmission Date: 20140515
  Serious: Yes (Death)
  Sender: FDA-Public Use
  Company Number: US-PFIZER INC-2012217389

PATIENT
  Age: 84 Year
  Sex: Female

DRUGS (2)
  1. REVATIO [Suspect]
     Indication: PULMONARY HYPERTENSION
     Dosage: 20 MG, 3X/DAY
     Dates: start: 20090205
  2. REVATIO [Suspect]
     Dosage: 40 MG, 3X/DAY

REACTIONS (3)
  - Pulmonary hypertension [Fatal]
  - Headache [Unknown]
  - Off label use [Unknown]
